FAERS Safety Report 6995924-5 (Version None)
Quarter: 2010Q3

REPORT INFORMATION
  Report Type: 
  Country: None (occurrence: None)
  Receive Date: 20100918
  Receipt Date: 20090126
  Transmission Date: 20110219
  Serious: No
  Sender: FDA-Public Use
  Company Number: US-WYE-H06234508

PATIENT
  Sex: Female
  Weight: 113.5 kg

DRUGS (5)
  1. EFFEXOR [Suspect]
     Indication: PANIC ATTACK
     Route: 048
  2. VICODIN [Concomitant]
  3. ACTOS [Concomitant]
  4. PROTONIX [Concomitant]
  5. VENLAFAXINE HYDROCHLORIDE [Suspect]

REACTIONS (2)
  - ANXIETY [None]
  - INTENTIONAL DRUG MISUSE [None]
